FAERS Safety Report 24303178 (Version 1)
Quarter: 2024Q3

REPORT INFORMATION
  Report Type: Spontaneous
  Country: GB (occurrence: GB)
  Receive Date: 20240910
  Receipt Date: 20240910
  Transmission Date: 20241017
  Serious: Yes (Life-Threatening, Hospitalization, Other)
  Sender: SUNOVION
  Company Number: None

PATIENT

DRUGS (1)
  1. LATUDA [Suspect]
     Active Substance: LURASIDONE HYDROCHLORIDE
     Indication: Product used for unknown indication
     Dosage: UNK
     Route: 065

REACTIONS (4)
  - Somatic symptom disorder of pregnancy [Recovered/Resolved with Sequelae]
  - Lactation puerperal increased [Recovered/Resolved]
  - Seizure [Recovered/Resolved]
  - Weight increased [Not Recovered/Not Resolved]
